FAERS Safety Report 17056695 (Version 1)
Quarter: 2019Q4

REPORT INFORMATION
  Report Type: Spontaneous
  Country: CA (occurrence: CA)
  Receive Date: 20191121
  Receipt Date: 20191121
  Transmission Date: 20200122
  Serious: Yes (Other)
  Sender: FDA-Public Use
  Company Number: CA-ROCHE-2467963

PATIENT
  Age: 24 Year
  Sex: Female
  Weight: 58 kg

DRUGS (30)
  1. BACLOFEN. [Concomitant]
     Active Substance: BACLOFEN
  2. BETADERM [BETAMETHASONE VALERATE] [Concomitant]
  3. FOLIC ACID. [Concomitant]
     Active Substance: FOLIC ACID
  4. IMMUNOGLOBULIN G HUMAN [Concomitant]
     Active Substance: HUMAN IMMUNOGLOBULIN G
  5. METHOXSALEN. [Concomitant]
     Active Substance: METHOXSALEN
  6. NAPROXEN. [Concomitant]
     Active Substance: NAPROXEN
  7. FLUOROMETHOLONE. [Concomitant]
     Active Substance: FLUOROMETHOLONE
     Route: 065
  8. GRAVOL [Concomitant]
     Active Substance: DIMENHYDRINATE
  9. PREDNISONE. [Concomitant]
     Active Substance: PREDNISONE
  10. AZITHROMYCIN ANHYDROUS. [Concomitant]
     Active Substance: AZITHROMYCIN ANHYDROUS
  11. STATEX [MORPHINE SULFATE] [Concomitant]
     Active Substance: MORPHINE SULFATE
  12. CYANOCOBALAMIN. [Concomitant]
     Active Substance: CYANOCOBALAMIN
  13. GABAPENTIN. [Concomitant]
     Active Substance: GABAPENTIN
     Route: 065
  14. LYRICA [Concomitant]
     Active Substance: PREGABALIN
  15. PREMARIN [Concomitant]
     Active Substance: ESTROGENS, CONJUGATED
  16. TOBRADEX [Concomitant]
     Active Substance: DEXAMETHASONE\TOBRAMYCIN
  17. MABTHERA [Suspect]
     Active Substance: RITUXIMAB
     Indication: ACUTE LYMPHOCYTIC LEUKAEMIA
     Route: 042
  18. AMITRIPTYLINE [Concomitant]
     Active Substance: AMITRIPTYLINE
  19. MABTHERA [Suspect]
     Active Substance: RITUXIMAB
     Indication: GRAFT VERSUS HOST DISEASE
     Dosage: 4 DF
     Route: 042
  20. PENTAMIDINE [Concomitant]
     Active Substance: PENTAMIDINE
  21. TACROLIMUS. [Concomitant]
     Active Substance: TACROLIMUS
  22. ACTONEL [Concomitant]
     Active Substance: RISEDRONATE SODIUM
  23. FLUCONAZOLE. [Concomitant]
     Active Substance: FLUCONAZOLE
  24. PANTOLOC [PANTOPRAZOLE] [Concomitant]
     Active Substance: PANTOPRAZOLE SODIUM
  25. HYDROMORPHONE HYDROCHLORIDE. [Suspect]
     Active Substance: HYDROMORPHONE HYDROCHLORIDE
     Indication: PRODUCT USED FOR UNKNOWN INDICATION
     Route: 065
  26. ACYCLOVIR [ACICLOVIR] [Concomitant]
     Active Substance: ACYCLOVIR
  27. BENADRYL [Concomitant]
     Active Substance: DIPHENHYDRAMINE HYDROCHLORIDE
  28. DESOXIMETASONE. [Concomitant]
     Active Substance: DESOXIMETASONE
  29. DIPHENHYDRAMINE HYDROCHLORIDE. [Concomitant]
     Active Substance: DIPHENHYDRAMINE HYDROCHLORIDE
  30. SALBUTAMOL [Concomitant]
     Active Substance: ALBUTEROL

REACTIONS (5)
  - Drug intolerance [Unknown]
  - Dysphagia [Unknown]
  - Vomiting [Unknown]
  - Cardiac failure [Unknown]
  - Off label use [Unknown]
